FAERS Safety Report 4519458-2 (Version None)
Quarter: 2004Q4

REPORT INFORMATION
  Report Type: 
  Country: None (occurrence: None)
  Receive Date: 20041202
  Receipt Date: 20041115
  Transmission Date: 20050328
  Serious: Yes (Death, Hospitalization)
  Sender: FDA-Public Use
  Company Number: S04-DEN-04699-01

PATIENT
  Age: 87 Year
  Sex: Male

DRUGS (13)
  1. AKARIN (CITALOPRAM) [Suspect]
     Indication: DEPRESSION
     Dosage: 10 MG QD PO
     Route: 048
     Dates: start: 20040824, end: 20040826
  2. CENTYL MED KALIUMKLORID MITE (BENDROFLUMETHIAZIDE) [Concomitant]
  3. CORODIL (ENALAPRIL) [Concomitant]
  4. DURA-ZOK (METOPROLOL) [Concomitant]
  5. IMOZOP (ZOPICLONE) [Concomitant]
  6. LOCOID [Concomitant]
  7. MAGNYL ^SAD^ (ACETYLSALICYLIC AICD) [Concomitant]
  8. XATRAL UNO (ALFUZOSIN) [Concomitant]
  9. MULTI-VITAMINS [Concomitant]
  10. HALOPERIDOL [Concomitant]
  11. HALOPERIDOL [Concomitant]
  12. FENEMAL ^ACO^ (PHENOBARBITAL) [Concomitant]
  13. LOSEC (OMEPRAZOLE) [Concomitant]

REACTIONS (13)
  - BLOOD ALKALINE PHOSPHATASE DECREASED [None]
  - BLOOD ALKALINE PHOSPHATASE INCREASED [None]
  - BLOOD CALCIUM DECREASED [None]
  - BLOOD CREATININE INCREASED [None]
  - BLOOD OSMOLARITY DECREASED [None]
  - CIRCULATORY COLLAPSE [None]
  - CONFUSIONAL STATE [None]
  - DRUG INTERACTION [None]
  - GASTROINTESTINAL HAEMORRHAGE [None]
  - HAEMOGLOBIN DECREASED [None]
  - HYPONATRAEMIA [None]
  - PROSTATIC SPECIFIC ANTIGEN INCREASED [None]
  - RESPIRATORY DISORDER [None]
